FAERS Safety Report 11394493 (Version 1)
Quarter: 2015Q3

REPORT INFORMATION
  Report Type: Spontaneous
  Country: US (occurrence: None)
  Receive Date: 20150817
  Receipt Date: 20150817
  Transmission Date: 20151125
  Serious: No
  Sender: FDA-Public Use
  Company Number: None

PATIENT
  Sex: Female
  Weight: 91.17 kg

DRUGS (1)
  1. SYNTHROID [Suspect]
     Active Substance: LEVOTHYROXINE SODIUM
     Indication: HYPERTHYROIDISM
     Dosage: 150MG  ONE DAILY ORAL
     Route: 048

REACTIONS (1)
  - Drug ineffective [None]
